FAERS Safety Report 7546504-4 (Version None)
Quarter: 2011Q2

REPORT INFORMATION
  Report Type: 
  Country: None (occurrence: None)
  Receive Date: 20110607
  Receipt Date: 20110523
  Transmission Date: 20111010
  Serious: Yes (Hospitalization)
  Sender: FDA-Public Use
  Company Number: 2011MA006249

PATIENT
  Age: 83 Year
  Sex: Female

DRUGS (1)
  1. SULFATRIM AND SULFATRIM PEDIATRIC SUSPENSION [Suspect]
     Indication: URINARY TRACT INFECTION

REACTIONS (2)
  - TOXIC EPIDERMAL NECROLYSIS [None]
  - C-REACTIVE PROTEIN INCREASED [None]
